FAERS Safety Report 5138409-3 (Version None)
Quarter: 2006Q4

REPORT INFORMATION
  Report Type: 
  Country: None (occurrence: None)
  Receive Date: 20061030
  Receipt Date: 20060220
  Transmission Date: 20070319
  Serious: No
  Sender: FDA-Public Use
  Company Number: US-GLAXOSMITHKLINE-A0594384A

PATIENT
  Age: 61 Year
  Sex: Female

DRUGS (2)
  1. ADVAIR DISKUS 250/50 [Suspect]
     Indication: CHRONIC OBSTRUCTIVE PULMONARY DISEASE
     Dosage: 1PUFF TWICE PER DAY
     Route: 055
     Dates: start: 20050801, end: 20060201
  2. SPIRIVA [Concomitant]

REACTIONS (3)
  - DYSPHONIA [None]
  - PALPITATIONS [None]
  - TREMOR [None]
